FAERS Safety Report 21539173 (Version 1)
Quarter: 2022Q4

REPORT INFORMATION
  Report Type: Spontaneous
  Country: CA (occurrence: CA)
  Receive Date: 20221102
  Receipt Date: 20221102
  Transmission Date: 20230113
  Serious: Yes (Life-Threatening, Hospitalization, Other)
  Sender: FDA-Public Use
  Company Number: CA-MLMSERVICE-20221018-3866289-1

PATIENT
  Age: 15 Year
  Sex: Female
  Weight: 54 kg

DRUGS (7)
  1. AMLODIPINE [Suspect]
     Active Substance: AMLODIPINE BESYLATE
     Indication: Product used for unknown indication
  2. CANDESARTAN [Concomitant]
     Active Substance: CANDESARTAN
  3. HYDROCHLOROTHIAZIDE [Concomitant]
     Active Substance: HYDROCHLOROTHIAZIDE
  4. FLUOXETINE [Concomitant]
     Active Substance: FLUOXETINE HYDROCHLORIDE
  5. LANSOPRAZOLE [Concomitant]
     Active Substance: LANSOPRAZOLE
  6. LORAZEPAM [Concomitant]
     Active Substance: LORAZEPAM
  7. MIRTAZAPINE [Concomitant]
     Active Substance: MIRTAZAPINE

REACTIONS (4)
  - Toxicity to various agents [Recovered/Resolved]
  - Intentional overdose [Recovered/Resolved]
  - Acute respiratory distress syndrome [Recovering/Resolving]
  - Hypotension [Recovered/Resolved]
